FAERS Safety Report 11079720 (Version 1)
Quarter: 2015Q2

REPORT INFORMATION
  Report Type: Spontaneous
  Country: BR (occurrence: BR)
  Receive Date: 20150430
  Receipt Date: 20150430
  Transmission Date: 20150821
  Serious: Yes (Hospitalization, Other)
  Sender: FDA-Public Use
  Company Number: BR-PFIZER INC-2015102379

PATIENT
  Age: 62 Year
  Sex: Female
  Weight: 60 kg

DRUGS (2)
  1. CELEBRA [Suspect]
     Active Substance: CELECOXIB
     Indication: ARTHRALGIA
  2. CELEBRA [Suspect]
     Active Substance: CELECOXIB
     Indication: PAIN
     Dosage: 1 CAPSULE OF 200 MG, 2X/DAY
     Route: 048
     Dates: start: 1995

REACTIONS (3)
  - Venous thrombosis [Not Recovered/Not Resolved]
  - Varicose vein [Unknown]
  - Spleen disorder [Unknown]

NARRATIVE: CASE EVENT DATE: 1998
